FAERS Safety Report 10029222 (Version 1)
Quarter: 2014Q1

REPORT INFORMATION
  Report Type: Report from Study
  Country: CO (occurrence: CO)
  Receive Date: 20140321
  Receipt Date: 20140321
  Transmission Date: 20141002
  Serious: Yes (Hospitalization)
  Sender: FDA-Public Use
  Company Number: CO-ABBVIE-14P-036-1215577-00

PATIENT
  Age: 39 Year
  Sex: Female
  Weight: 65 kg

DRUGS (2)
  1. HUMIRA [Suspect]
     Indication: RHEUMATOID ARTHRITIS
     Route: 058
     Dates: start: 20140123, end: 20140306
  2. PREDNISOLONE [Concomitant]
     Indication: PRODUCT USED FOR UNKNOWN INDICATION

REACTIONS (3)
  - Perineal pain [Recovering/Resolving]
  - Pelvic pain [Recovering/Resolving]
  - Urinary tract infection [Recovering/Resolving]
